FAERS Safety Report 7790718-5 (Version None)
Quarter: 2011Q3

REPORT INFORMATION
  Report Type: 
  Country: None (occurrence: None)
  Receive Date: 20110930
  Receipt Date: 20090328
  Transmission Date: 20111222
  Serious: Yes (Other)
  Sender: FDA-Public Use
  Company Number: PHHY2009TW60890

PATIENT
  Sex: Female

DRUGS (6)
  1. GLEEVEC [Suspect]
     Dosage: 400 MG, UNK
     Route: 048
  2. GLEEVEC [Suspect]
     Dosage: 2 PILLS IN THE MORNING AND EVENING
  3. GLEEVEC [Suspect]
     Dosage: 1 PILL, 3 TIMES PER DAY
  4. GLEEVEC [Suspect]
     Indication: GASTROINTESTINAL STROMAL TUMOUR
     Dosage: 200 MG UNK
     Route: 048
     Dates: start: 20090305
  5. GLEEVEC [Suspect]
     Dosage: 1 PILL IN THE MORNING AND EVENING.
  6. GLEEVEC [Suspect]
     Dosage: 3 PILLS

REACTIONS (12)
  - DIZZINESS [None]
  - DEPRESSION [None]
  - EYE DISCHARGE [None]
  - DIARRHOEA [None]
  - UTERINE LEIOMYOMA [None]
  - DISCOMFORT [None]
  - HAEMORRHAGE SUBCUTANEOUS [None]
  - LACRIMATION INCREASED [None]
  - WHITE BLOOD CELL COUNT DECREASED [None]
  - SKIN ATROPHY [None]
  - PLEURAL EFFUSION [None]
  - ABDOMINAL PAIN [None]
